FAERS Safety Report 20335236 (Version 1)
Quarter: 2022Q1

REPORT INFORMATION
  Report Type: Spontaneous
  Country: US (occurrence: None)
  Receive Date: 20220113
  Receipt Date: 20220113
  Transmission Date: 20220423
  Serious: No
  Sender: FDA-Public Use
  Company Number: None

PATIENT
  Age: 61 Year
  Sex: Female

DRUGS (2)
  1. ENBREL [Suspect]
     Active Substance: ETANERCEPT
     Indication: Skin candida
     Dosage: FREQUENCY : TWICE A DAY;?
     Route: 058
     Dates: start: 202109
  2. ENBREL [Suspect]
     Active Substance: ETANERCEPT
     Indication: Psoriasis

REACTIONS (1)
  - Ear infection [None]
